FAERS Safety Report 18519725 (Version 1)
Quarter: 2020Q4

REPORT INFORMATION
  Report Type: Spontaneous
  Country: US (occurrence: US)
  Receive Date: 20201118
  Receipt Date: 20201118
  Transmission Date: 20210114
  Serious: No
  Sender: FDA-Public Use
  Company Number: US-009507513-2011USA004622

PATIENT
  Age: 71 Year
  Sex: Male

DRUGS (1)
  1. BELSOMRA [Suspect]
     Active Substance: SUVOREXANT
     Indication: SLEEP DISORDER
     Dosage: 15 MILLIGRAM, TOTAL TAKEN:4 TABLETS
     Route: 048
     Dates: start: 20201104

REACTIONS (4)
  - Drug ineffective [Not Recovered/Not Resolved]
  - Product communication issue [Unknown]
  - Inappropriate schedule of product administration [Unknown]
  - Incorrect dose administered [Unknown]

NARRATIVE: CASE EVENT DATE: 20201104
